FAERS Safety Report 4783890-2 (Version None)
Quarter: 2005Q3

REPORT INFORMATION
  Report Type: 
  Country: None (occurrence: None)
  Receive Date: 20050927
  Receipt Date: 20050613
  Transmission Date: 20060218
  Serious: No
  Sender: FDA-Public Use
  Company Number: USA0506100412

PATIENT
  Age: 26 Year
  Sex: Male

DRUGS (3)
  1. STRATTERA [Suspect]
     Indication: ATTENTION DEFICIT/HYPERACTIVITY DISORDER
  2. GEODON [Concomitant]
  3. ABILIFY [Concomitant]

REACTIONS (1)
  - URINE AMPHETAMINE POSITIVE [None]
